FAERS Safety Report 5678381-0 (Version None)
Quarter: 2008Q1

REPORT INFORMATION
  Report Type: 
  Country: None (occurrence: None)
  Receive Date: 20080321
  Receipt Date: 20080312
  Transmission Date: 20080703
  Serious: Yes (Other)
  Sender: FDA-Public Use
  Company Number: 2008006376

PATIENT
  Age: 13 Year
  Sex: Male
  Weight: 29.4838 kg

DRUGS (1)
  1. SUDACARE SHOWER SOOTHERS (NO ACTIVE INGREDIENT) [Suspect]
     Indication: RHINORRHOEA
     Dosage: 1 TABLET ONCE, TOPICAL
     Route: 061
     Dates: start: 20080301, end: 20080301

REACTIONS (4)
  - BURNING SENSATION [None]
  - DRUG INEFFECTIVE [None]
  - PAIN [None]
  - URINARY TRACT INFECTION [None]
